FAERS Safety Report 8097279-4 (Version None)
Quarter: 2012Q1

REPORT INFORMATION
  Report Type: 
  Country: None (occurrence: None)
  Receive Date: 20120128
  Receipt Date: 20110628
  Transmission Date: 20120608
  Serious: No
  Sender: FDA-Public Use
  Company Number: US-ABBOTT-11P-163-0835217-00

PATIENT
  Age: 57 Year
  Sex: Male

DRUGS (5)
  1. VICODIN [Concomitant]
     Indication: PAIN
     Dosage: DOSE NOT REPORTED - PRN
  2. NAPROXEN (ALEVE) [Concomitant]
     Indication: PRODUCT USED FOR UNKNOWN INDICATION
     Dosage: DOSE NOT REPORTED - AS NEEDED
  3. HUMIRA [Suspect]
     Indication: PSORIASIS
  4. HUMIRA [Suspect]
     Indication: RHEUMATOID ARTHRITIS
     Dates: start: 20040101, end: 20100101
  5. MUSCLE RELAXANTS [Concomitant]
     Indication: PRODUCT USED FOR UNKNOWN INDICATION

REACTIONS (5)
  - DRUG INEFFECTIVE [None]
  - REBOUND PSORIASIS [None]
  - PSORIASIS [None]
  - ARTHRALGIA [None]
  - DRUG DOSE OMISSION [None]
